FAERS Safety Report 14123476 (Version 3)
Quarter: 2017Q4

REPORT INFORMATION
  Report Type: Report from Study
  Country: NL (occurrence: NL)
  Receive Date: 20171025
  Receipt Date: 20171217
  Transmission Date: 20180321
  Serious: Yes (Hospitalization)
  Sender: FDA-Public Use
  Company Number: NL-BEH-2017084552

PATIENT
  Age: 56 Year
  Sex: Female

DRUGS (8)
  1. HIZENTRA [Suspect]
     Active Substance: HUMAN IMMUNOGLOBULIN G
     Indication: LUNG TRANSPLANT
     Dosage: UNK, 5ML
     Route: 058
  2. HIZENTRA [Suspect]
     Active Substance: HUMAN IMMUNOGLOBULIN G
     Indication: IMMUNODEFICIENCY
     Dosage: 3 G, QW
     Route: 058
     Dates: start: 20170801
  3. PREGABALIN. [Concomitant]
     Active Substance: PREGABALIN
     Indication: INTERVERTEBRAL DISC PROTRUSION
  4. HIZENTRA [Suspect]
     Active Substance: HUMAN IMMUNOGLOBULIN G
     Dosage: UNK, 10ML
     Route: 058
  5. HIZENTRA [Suspect]
     Active Substance: HUMAN IMMUNOGLOBULIN G
     Dosage: UNK, 5ML
     Route: 058
  6. HIZENTRA [Suspect]
     Active Substance: HUMAN IMMUNOGLOBULIN G
     Dosage: UNK, 10ML
     Route: 058
  7. AMITRIPTYLINE [Concomitant]
     Active Substance: AMITRIPTYLINE
     Indication: INTERVERTEBRAL DISC PROTRUSION
  8. OXYCODONE [Concomitant]
     Active Substance: OXYCODONE
     Indication: INTERVERTEBRAL DISC PROTRUSION

REACTIONS (4)
  - Disturbance in attention [Recovered/Resolved with Sequelae]
  - Tremor [Recovered/Resolved with Sequelae]
  - Pneumonia [Recovered/Resolved with Sequelae]
  - Eyelid oedema [Recovered/Resolved with Sequelae]

NARRATIVE: CASE EVENT DATE: 201708
